FAERS Safety Report 10020938 (Version 2)
Quarter: 2014Q2

REPORT INFORMATION
  Report Type: Spontaneous
  Country: JP (occurrence: JP)
  Receive Date: 20140319
  Receipt Date: 20140415
  Transmission Date: 20141212
  Serious: Yes (Other)
  Sender: FDA-Public Use
  Company Number: JP-BRISTOL-MYERS SQUIBB COMPANY-20514378

PATIENT
  Age: 57 Year
  Sex: Female

DRUGS (3)
  1. ABILIFY TABS [Suspect]
     Indication: DEPRESSION
     Dosage: 12JUL13:27FEB14:231DAYS:3MG/DAY?UNK:UNK:3MG
     Route: 048
     Dates: start: 20130712
  2. CYMBALTA [Concomitant]
     Dosage: CAPSULE
  3. LEXAPRO [Concomitant]
     Dosage: TABLET
     Dates: start: 20130927

REACTIONS (3)
  - Syncope [Recovered/Resolved]
  - Urinary incontinence [Recovered/Resolved]
  - Cold sweat [Recovered/Resolved]
